FAERS Safety Report 7252586-X (Version None)
Quarter: 2011Q1

REPORT INFORMATION
  Report Type: 
  Country: None (occurrence: None)
  Receive Date: 20110129
  Receipt Date: 20100421
  Transmission Date: 20110831
  Serious: Yes (Hospitalization, Other)
  Sender: FDA-Public Use
  Company Number: US-ABBOTT-10P-163-0637404-00

PATIENT
  Sex: Male
  Weight: 73.548 kg

DRUGS (2)
  1. HUMIRA [Suspect]
     Indication: PSORIATIC ARTHROPATHY
     Dates: end: 20100101
  2. HUMIRA [Suspect]
     Dates: start: 20100401

REACTIONS (7)
  - HIP FRACTURE [None]
  - MYALGIA [None]
  - FALL [None]
  - INGROWING NAIL [None]
  - LOCALISED INFECTION [None]
  - PAIN IN EXTREMITY [None]
  - NODULE [None]
